FAERS Safety Report 6266662-1 (Version None)
Quarter: 2009Q3

REPORT INFORMATION
  Report Type: 
  Country: None (occurrence: None)
  Receive Date: 20090709
  Receipt Date: 20090617
  Transmission Date: 20100115
  Serious: Yes (Other)
  Sender: FDA-Public Use
  Company Number: JPI-P-007320

PATIENT
  Age: 56 Year
  Sex: Male

DRUGS (3)
  1. FLUVOXAMINE MALEATE [Suspect]
     Indication: DRUG USE FOR UNKNOWN INDICATION
     Dosage: (300 MG, 1 D), ORAL
     Route: 048
     Dates: start: 20090101
  2. AMOXAPINE [Concomitant]
  3. MILNACIPRAN HYDROCHLORIDE [Concomitant]

REACTIONS (1)
  - DEMENTIA [None]
